FAERS Safety Report 5788930-X (Version None)
Quarter: 2008Q2

REPORT INFORMATION
  Report Type: 
  Country: None (occurrence: None)
  Receive Date: 20080625
  Receipt Date: 20080625
  Transmission Date: 20081010
  Serious: Yes (Death)
  Sender: FDA-Public Use
  Company Number: None

PATIENT
  Age: 76 Year
  Sex: Male
  Weight: 95.2554 kg

DRUGS (1)
  1. LEVITRA [Suspect]
     Indication: ERECTILE DYSFUNCTION
     Dosage: 10 MG TWICE EVER PO
     Route: 048
     Dates: start: 20080526, end: 20080528

REACTIONS (3)
  - FLUSHING [None]
  - PULSE ABSENT [None]
  - RESPIRATORY ARREST [None]
